FAERS Safety Report 4985942-0 (Version None)
Quarter: 2006Q2

REPORT INFORMATION
  Report Type: 
  Country: None (occurrence: None)
  Receive Date: 20060421
  Receipt Date: 20060418
  Transmission Date: 20061013
  Serious: Yes (Disabling)
  Sender: FDA-Public Use
  Company Number: 2006052072

PATIENT
  Age: 37 Year
  Sex: Female

DRUGS (1)
  1. RELPAX [Suspect]
     Indication: MIGRAINE WITH AURA
     Dosage: ORAL
     Route: 048

REACTIONS (1)
  - CEREBRAL ISCHAEMIA [None]
